FAERS Safety Report 5075401-1 (Version None)
Quarter: 2006Q3

REPORT INFORMATION
  Report Type: 
  Country: None (occurrence: None)
  Receive Date: 20060807
  Receipt Date: 20060807
  Transmission Date: 20061208
  Serious: Yes (Life-Threatening)
  Sender: FDA-Public Use
  Company Number: None

PATIENT
  Sex: Female
  Weight: 113.3993 kg

DRUGS (1)
  1. MORPHINE [Suspect]

REACTIONS (17)
  - ABASIA [None]
  - ANXIETY [None]
  - ASTHENIA [None]
  - BONE DISORDER [None]
  - CONDITION AGGRAVATED [None]
  - DYSKINESIA [None]
  - ECONOMIC PROBLEM [None]
  - FALL [None]
  - FEAR [None]
  - FEELING HOT [None]
  - HYPERHIDROSIS [None]
  - MALAISE [None]
  - NERVOUS SYSTEM DISORDER [None]
  - PARAESTHESIA [None]
  - RETCHING [None]
  - SENSORY LOSS [None]
  - UPPER LIMB FRACTURE [None]
